FAERS Safety Report 13377788 (Version 1)
Quarter: 2017Q1

REPORT INFORMATION
  Report Type: Report from Study
  Country: GB (occurrence: GB)
  Receive Date: 20170328
  Receipt Date: 20170328
  Transmission Date: 20170429
  Serious: Yes (Other)
  Sender: FDA-Public Use
  Company Number: GB-BRISTOL-MYERS SQUIBB COMPANY-BMS-2017-025230

PATIENT
  Sex: Female

DRUGS (1)
  1. ABATACEPT [Suspect]
     Active Substance: ABATACEPT
     Indication: RHEUMATOID ARTHRITIS
     Dosage: 125 MG, QWK
     Route: 058
     Dates: start: 20131119

REACTIONS (7)
  - Contusion [Unknown]
  - Skin ulcer [Unknown]
  - Hip arthroplasty [Unknown]
  - Neoplasm malignant [Unknown]
  - Knee arthroplasty [Unknown]
  - Fall [Unknown]
  - Cancer surgery [Unknown]
